FAERS Safety Report 5301320-9 (Version None)
Quarter: 2007Q2

REPORT INFORMATION
  Report Type: 
  Country: None (occurrence: None)
  Receive Date: 20070418
  Receipt Date: 20070410
  Transmission Date: 20071010
  Serious: Yes (Hospitalization, Other)
  Sender: FDA-Public Use
  Company Number: US-PFIZER INC-2007028912

PATIENT
  Sex: Female
  Weight: 83.9 kg

DRUGS (3)
  1. DILANTIN [Suspect]
     Indication: EPILEPSY
  2. PLAVIX [Concomitant]
  3. VITAMINS [Concomitant]

REACTIONS (4)
  - FATIGUE [None]
  - GINGIVAL RECESSION [None]
  - HIATUS HERNIA [None]
  - RED BLOOD CELL COUNT DECREASED [None]
